FAERS Safety Report 18291133 (Version 2)
Quarter: 2020Q3

REPORT INFORMATION
  Report Type: Report from Study
  Country: US (occurrence: US)
  Receive Date: 20200921
  Receipt Date: 20200930
  Transmission Date: 20201103
  Serious: Yes (Hospitalization, Other)
  Sender: FDA-Public Use
  Company Number: US-MYLANLABS-2020M1079797

PATIENT
  Sex: Male

DRUGS (5)
  1. TECFIDERA [Suspect]
     Active Substance: DIMETHYL FUMARATE
     Indication: MULTIPLE SCLEROSIS
     Dosage: UNK
  2. GLATIRAMER ACETATE INJECTION [Suspect]
     Active Substance: GLATIRAMER ACETATE
     Indication: MULTIPLE SCLEROSIS
     Dosage: 20 MILLIGRAM, QD
     Route: 058
  3. GABAPENTIN. [Concomitant]
     Active Substance: GABAPENTIN
     Indication: NEURALGIA
     Dosage: UNK
  4. AMANTADINE. [Concomitant]
     Active Substance: AMANTADINE HYDROCHLORIDE
     Indication: FATIGUE
     Dosage: UNK
  5. TIZANIDINE. [Concomitant]
     Active Substance: TIZANIDINE
     Indication: MUSCLE RELAXANT THERAPY
     Dosage: UNK

REACTIONS (4)
  - Asthma [Unknown]
  - Pneumonia [Unknown]
  - COVID-19 [Unknown]
  - Drug ineffective [Unknown]
